FAERS Safety Report 12384934 (Version 1)
Quarter: 2016Q2

REPORT INFORMATION
  Report Type: Spontaneous
  Country: US (occurrence: None)
  Receive Date: 20160518
  Receipt Date: 20160518
  Transmission Date: 20160815
  Serious: Yes (Hospitalization, Other)
  Sender: FDA-Public Use
  Company Number: None

PATIENT
  Age: 61 Year
  Sex: Female
  Weight: 64.86 kg

DRUGS (12)
  1. COREG [Concomitant]
     Active Substance: CARVEDILOL
  2. CALCIUM [Concomitant]
     Active Substance: CALCIUM
  3. VITAMIN D [Concomitant]
     Active Substance: CHOLECALCIFEROL
  4. DENOSUMAB [Concomitant]
     Active Substance: DENOSUMAB
  5. LEXAPRO [Concomitant]
     Active Substance: ESCITALOPRAM OXALATE
  6. FULVESTRANT [Concomitant]
     Active Substance: FULVESTRANT
  7. EXEMESTANE. [Concomitant]
     Active Substance: EXEMESTANE
  8. RANITIDINE. [Concomitant]
     Active Substance: RANITIDINE
  9. VITAMIN C [Concomitant]
     Active Substance: ASCORBIC ACID
  10. ADRIAMYCIN [Suspect]
     Active Substance: DOXORUBICIN HYDROCHLORIDE
     Indication: LUNG CANCER METASTATIC
     Route: 040
  11. CHOLECALCIFEROL [Concomitant]
     Active Substance: CHOLECALCIFEROL
  12. ASPIRIN. [Concomitant]
     Active Substance: ASPIRIN

REACTIONS (4)
  - Dyspnoea [None]
  - Respiratory failure [None]
  - Cardiomyopathy [None]
  - Cardiac failure congestive [None]

NARRATIVE: CASE EVENT DATE: 20070501
